FAERS Safety Report 9908519 (Version 3)
Quarter: 2014Q2

REPORT INFORMATION
  Report Type: Spontaneous
  Country: BE (occurrence: BE)
  Receive Date: 20140219
  Receipt Date: 20140421
  Transmission Date: 20141212
  Serious: Yes (Death, Life-Threatening)
  Sender: FDA-Public Use
  Company Number: BE-ROCHE-1351951

PATIENT
  Age: 62 Year
  Sex: Female
  Weight: 80 kg

DRUGS (7)
  1. ROACTEMRA [Suspect]
     Indication: RHEUMATOID ARTHRITIS
     Route: 042
     Dates: start: 20110912, end: 20131007
  2. CARBOPLATIN [Suspect]
     Indication: METASTASIS
     Route: 042
  3. GEMCITABINE [Suspect]
     Indication: METASTASIS
     Route: 042
  4. FOSAVANCE [Concomitant]
     Indication: OSTEOPOROSIS
     Route: 065
  5. LEDERTREXATE [Concomitant]
     Indication: RHEUMATOID ARTHRITIS
     Route: 048
     Dates: start: 20081106
  6. IBUPROFEN [Concomitant]
  7. MEDROL [Concomitant]

REACTIONS (3)
  - Disease progression [Fatal]
  - Lung adenocarcinoma [Unknown]
  - Cough [Unknown]
